FAERS Safety Report 23713915 (Version 1)
Quarter: 2024Q2

REPORT INFORMATION
  Report Type: Spontaneous
  Country: US (occurrence: US)
  Receive Date: 20240405
  Receipt Date: 20240405
  Transmission Date: 20240716
  Serious: Yes (Other)
  Sender: FDA-Public Use
  Company Number: US-INSUD PHARMA-2403US02820

PATIENT

DRUGS (1)
  1. ENILLORING [Suspect]
     Active Substance: ETHINYL ESTRADIOL\ETONOGESTREL
     Indication: Contraception
     Dosage: VAGINAL RING, CONTINUOUS
     Route: 067

REACTIONS (3)
  - Cutaneous vasculitis [Unknown]
  - Rash [Unknown]
  - Cervical dysplasia [Unknown]
